FAERS Safety Report 6715841-5 (Version None)
Quarter: 2010Q2

REPORT INFORMATION
  Report Type: 
  Country: None (occurrence: None)
  Receive Date: 20100507
  Receipt Date: 20100504
  Transmission Date: 20101027
  Serious: Yes (Death, Other)
  Sender: FDA-Public Use
  Company Number: RU-JNJFOC-20100404851

PATIENT
  Sex: Male

DRUGS (2)
  1. LEVOFLOXACIN [Suspect]
     Indication: PNEUMONIA
     Route: 048
  2. CARDIAC THERAPY [Concomitant]
     Indication: CARDIAC DISORDER
     Route: 065

REACTIONS (4)
  - NEPHROLITHIASIS [None]
  - RENAL FAILURE CHRONIC [None]
  - SPLEEN DISORDER [None]
  - TUBULOINTERSTITIAL NEPHRITIS [None]
